FAERS Safety Report 7967825-7 (Version None)
Quarter: 2011Q4

REPORT INFORMATION
  Report Type: 
  Country: None (occurrence: None)
  Receive Date: 20111209
  Receipt Date: 20111202
  Transmission Date: 20120403
  Serious: Yes (Hospitalization)
  Sender: FDA-Public Use
  Company Number: JP-BAYER-2011-114612

PATIENT
  Age: 51 Year
  Sex: Male
  Weight: 80 kg

DRUGS (17)
  1. NIFEDIPINE [Suspect]
     Dosage: TOTAL DAILY DOSE: 80 MG
     Route: 048
     Dates: start: 20111201, end: 20111201
  2. TICLOPIDINE HCL [Concomitant]
     Dosage: DAILY DOSE 200 MG
     Route: 048
     Dates: start: 20111130, end: 20111130
  3. LOSARTAN POTASSIUM [Concomitant]
     Indication: HYPERTENSION
     Dosage: 25 MG, QD
     Route: 048
     Dates: start: 20110207, end: 20111126
  4. LOSARTAN POTASSIUM [Concomitant]
     Dosage: 25 MG, QD
     Route: 048
     Dates: start: 20111201
  5. LIPITOR [Concomitant]
     Dosage: DAILY DOSE 10 MG
     Route: 048
     Dates: start: 20111130
  6. ASPIRIN [Concomitant]
     Dosage: DAILY DOSE 100 MG
     Route: 048
     Dates: start: 20111130
  7. NIFEDIPINE [Suspect]
     Dosage: 40 MG, QD
     Route: 048
     Dates: start: 20111126, end: 20111126
  8. NIFEDIPINE [Suspect]
     Dosage: 40 MG, QD
     Route: 048
     Dates: start: 20111130, end: 20111130
  9. LANSOPRAZOLE [Concomitant]
     Dosage: DAILY DOSE 15 MG
     Route: 048
     Dates: start: 20111130
  10. CONIEL [Concomitant]
     Indication: ESSENTIAL HYPERTENSION
     Dosage: TOTAL DAILY DOSE: 8 MG
     Dates: start: 20111202
  11. NIFEDIPINE [Suspect]
     Dosage: TOTAL DAILY DOSE: 80 MG
     Route: 048
     Dates: start: 20110319, end: 20111125
  12. ADALAT [Concomitant]
     Indication: ESSENTIAL HYPERTENSION
     Dosage: 40 MG, BID
  13. NIFEDIPINE [Suspect]
     Indication: ESSENTIAL HYPERTENSION
     Dosage: 40 MG, QD
     Route: 048
     Dates: start: 20110309, end: 20110318
  14. ALLOPURINOL [Concomitant]
     Indication: HYPERURICAEMIA
     Dosage: DAILY DOSE 200 MG
     Route: 048
     Dates: start: 20050513
  15. URALYT [Concomitant]
     Indication: HYPERURICAEMIA
     Dosage: DAILY DOSE 2 DF
     Route: 048
     Dates: start: 20101002
  16. DIOVAN [Concomitant]
     Dosage: DAILY DOSE 80 MG
     Route: 048
     Dates: start: 20111126, end: 20111130
  17. ISOSORBIDE DINITRATE [Concomitant]
     Dosage: DAILY DOSE 40 MG
     Route: 062
     Dates: start: 20111130

REACTIONS (1)
  - ACUTE MYOCARDIAL INFARCTION [None]
